APPROVED DRUG PRODUCT: IBUPROFEN
Active Ingredient: IBUPROFEN
Strength: 200MG
Dosage Form/Route: TABLET;ORAL
Application: A075010 | Product #001
Applicant: LNK INTERNATIONAL INC
Approved: Mar 1, 1999 | RLD: No | RS: No | Type: OTC